FAERS Safety Report 12191090 (Version 2)
Quarter: 2016Q2

REPORT INFORMATION
  Report Type: Spontaneous
  Country: MA (occurrence: MA)
  Receive Date: 20160318
  Receipt Date: 20160415
  Transmission Date: 20160815
  Serious: Yes (Hospitalization, Other)
  Sender: FDA-Public Use
  Company Number: MA-ABBVIE-16K-110-1582496-00

PATIENT
  Age: 18 Year
  Sex: Female

DRUGS (2)
  1. HUMIRA [Suspect]
     Active Substance: ADALIMUMAB
     Indication: CROHN^S DISEASE
     Dosage: 4 INJECTIONS IN THE SAME DAY
     Route: 058
     Dates: start: 20151023, end: 20151023
  2. HUMIRA [Suspect]
     Active Substance: ADALIMUMAB
     Indication: ENTEROCOLITIS HAEMORRHAGIC
     Dosage: 2 INJECTIONS IN THE SAME DAY
     Route: 058
     Dates: start: 20151124, end: 20151124

REACTIONS (8)
  - General physical health deterioration [Unknown]
  - Arthralgia [Unknown]
  - Colitis [Recovered/Resolved]
  - Small intestinal perforation [Recovered/Resolved]
  - Anaemia [Unknown]
  - Perineal injury [Recovered/Resolved]
  - Immune system disorder [Unknown]
  - Tachycardia [Unknown]

NARRATIVE: CASE EVENT DATE: 2015
